FAERS Safety Report 5007773-8 (Version None)
Quarter: 2006Q2

REPORT INFORMATION
  Report Type: 
  Country: None (occurrence: None)
  Receive Date: 20060522
  Receipt Date: 20060515
  Transmission Date: 20061013
  Serious: Yes (Other)
  Sender: FDA-Public Use
  Company Number: 2006035115

PATIENT
  Age: 7 Week
  Sex: Female

DRUGS (4)
  1. ZANTAC [Suspect]
     Indication: GASTROOESOPHAGEAL REFLUX DISEASE
  2. ZYRTEC [Suspect]
     Indication: GASTROOESOPHAGEAL REFLUX DISEASE
  3. REGLAN [Suspect]
     Indication: GASTROOESOPHAGEAL REFLUX DISEASE
  4. MAALOX FAST BLOCKER [Suspect]
     Indication: GASTROOESOPHAGEAL REFLUX DISEASE

REACTIONS (8)
  - CONVULSION [None]
  - DYSKINESIA [None]
  - ILL-DEFINED DISORDER [None]
  - MEDICATION ERROR [None]
  - NERVE INJURY [None]
  - NERVOUS SYSTEM DISORDER [None]
  - SLEEP DISORDER [None]
  - WRONG DRUG ADMINISTERED [None]
